FAERS Safety Report 12665121 (Version 3)
Quarter: 2016Q3

REPORT INFORMATION
  Report Type: Report from Study
  Country: US (occurrence: US)
  Receive Date: 20160818
  Receipt Date: 20160912
  Transmission Date: 20161109
  Serious: Yes (Other)
  Sender: FDA-Public Use
  Company Number: US-BAYER-2016-140716

PATIENT
  Age: 49 Year
  Sex: Male

DRUGS (4)
  1. STIVARGA [Suspect]
     Active Substance: REGORAFENIB
     Indication: RECTAL CANCER
     Dosage: 160 MG (40 MG 4 QD, 21 ON 7 OFF)
     Route: 048
     Dates: start: 20160617, end: 2016
  2. STIVARGA [Suspect]
     Active Substance: REGORAFENIB
     Indication: METASTASES TO LIVER
     Dosage: 80 MG DAILY DOSE
     Route: 048
     Dates: start: 2016, end: 2016
  3. STIVARGA [Suspect]
     Active Substance: REGORAFENIB
     Indication: METASTASES TO BILIARY TRACT
     Dosage: 40 MG, QD
     Route: 048
     Dates: start: 2016
  4. STIVARGA [Suspect]
     Active Substance: REGORAFENIB
     Indication: COLON CANCER

REACTIONS (4)
  - Palmar-plantar erythrodysaesthesia syndrome [Recovered/Resolved]
  - Peripheral swelling [Recovered/Resolved]
  - Blister [Recovered/Resolved]
  - Gait disturbance [Recovered/Resolved]

NARRATIVE: CASE EVENT DATE: 20160704
